FAERS Safety Report 8594610 (Version 2)
Quarter: 2012Q4

REPORT INFORMATION
  Report Type: 
  Country: FR (occurrence: FR)
  Receive Date: 20120604
  Receipt Date: 20120910
  Transmission Date: 20130627
  Serious: Yes (Hospitalization)
  Sender: FDA-Public Use
  Company Number: FR-VIIV HEALTHCARE LIMITED-B0803224A

PATIENT
  Age: 60 Year
  Sex: Male

DRUGS (7)
  1. CELSENTRI [Suspect]
     Indication: HIV INFECTION
     Route: 048
     Dates: start: 20110922, end: 20111017
  2. ISENTRESS [Suspect]
     Indication: HIV INFECTION
     Route: 048
     Dates: start: 20110922, end: 20111017
  3. KIVEXA [Concomitant]
     Indication: HIV INFECTION
     Route: 048
     Dates: start: 20110922, end: 20111017
  4. BACTRIM FORTE [Concomitant]
     Route: 048
     Dates: start: 20110919, end: 20111014
  5. TRUVADA [Concomitant]
     Dates: start: 20111020, end: 20111123
  6. PENTACARINAT [Concomitant]
     Dates: start: 20111020
  7. EPIVIR [Concomitant]
     Indication: HIV INFECTION
     Dosage: 10MG Per day

REACTIONS (6)
  - Rash maculo-papular [Recovered/Resolved]
  - Eosinophil count increased [Recovered/Resolved]
  - Rash pruritic [Unknown]
  - Face oedema [Unknown]
  - Blood immunoglobulin E increased [Unknown]
  - Lymphadenopathy [None]
